FAERS Safety Report 23914754 (Version 4)
Quarter: 2025Q1

REPORT INFORMATION
  Report Type: Spontaneous
  Country: KR (occurrence: KR)
  Receive Date: 20240529
  Receipt Date: 20250128
  Transmission Date: 20250409
  Serious: Yes (Hospitalization)
  Sender: MYLAN
  Company Number: KR-MYLANLABS-2023M1125625

PATIENT
  Age: 55 Year
  Sex: Male

DRUGS (6)
  1. CLOZARIL [Suspect]
     Active Substance: CLOZAPINE
     Indication: Schizophrenia
     Route: 065
     Dates: start: 20220105, end: 20220129
  2. CLOZARIL [Suspect]
     Active Substance: CLOZAPINE
     Route: 065
     Dates: start: 20220129, end: 20220211
  3. CLOZARIL [Suspect]
     Active Substance: CLOZAPINE
     Route: 065
     Dates: start: 20220722
  4. INVEGA TRINZA [Concomitant]
     Active Substance: PALIPERIDONE PALMITATE
     Route: 065
     Dates: start: 20211230
  5. INVEGA TRINZA [Concomitant]
     Active Substance: PALIPERIDONE PALMITATE
     Route: 065
     Dates: start: 20220722
  6. DEPAKOTE ER [Concomitant]
     Active Substance: DIVALPROEX SODIUM
     Dosage: 750 MILLIGRAM, QD (BEFORE BEDTIME)
     Route: 065

REACTIONS (2)
  - Leukocytosis [Recovering/Resolving]
  - Neutrophil count increased [Not Recovered/Not Resolved]

NARRATIVE: CASE EVENT DATE: 20230106
